FAERS Safety Report 8585026-9 (Version None)
Quarter: 2012Q3

REPORT INFORMATION
  Report Type: 
  Country: None (occurrence: None)
  Receive Date: 20120810
  Receipt Date: 20120710
  Transmission Date: 20120928
  Serious: No
  Sender: FDA-Public Use
  Company Number: US-009507513-2012SP032515

PATIENT

DRUGS (1)
  1. SYLATRON [Suspect]
     Indication: MALIGNANT MELANOMA
     Dosage: 1.5 MICROGRAM/KILOGRAM
     Route: 058
     Dates: start: 20120404, end: 20120606

REACTIONS (1)
  - NEUTROPENIA [None]
